FAERS Safety Report 6177081-0 (Version None)
Quarter: 2009Q2

REPORT INFORMATION
  Report Type: 
  Country: None (occurrence: None)
  Receive Date: 20090423
  Receipt Date: 20090423
  Transmission Date: 20091009
  Serious: Yes (Other)
  Sender: FDA-Public Use
  Company Number: None

PATIENT

DRUGS (1)
  1. VIVAGLOBIN [Suspect]

REACTIONS (2)
  - PRODUCT DEPOSIT [None]
  - PRODUCT QUALITY ISSUE [None]
